FAERS Safety Report 4287208-3 (Version None)
Quarter: 2004Q1

REPORT INFORMATION
  Report Type: 
  Country: None (occurrence: None)
  Receive Date: 20040126
  Receipt Date: 20031006
  Transmission Date: 20041129
  Serious: No
  Sender: FDA-Public Use
  Company Number: USA031049159

PATIENT
  Age: 67 Year
  Sex: Female

DRUGS (15)
  1. FORTEO [Suspect]
     Indication: OSTEOPOROSIS
     Dosage: 20 UG/DAY
     Dates: start: 20030929
  2. EVISTA [Concomitant]
  3. HUMULIN N [Concomitant]
  4. PROPOXYPHENE HCL [Concomitant]
  5. PREDNISONE [Concomitant]
  6. NEURONTIN [Concomitant]
  7. LIPITOR [Concomitant]
  8. SINGULAIR [Concomitant]
  9. ZYRTEC [Concomitant]
  10. NORVASC [Concomitant]
  11. POTASSIUM [Concomitant]
  12. ENALAPRIL MALEATE [Concomitant]
  13. PLAVIX [Concomitant]
  14. PLETAL [Concomitant]
  15. PAXIL [Concomitant]

REACTIONS (1)
  - OVERDOSE [None]
